FAERS Safety Report 9311292 (Version 1)
Quarter: 2013Q2

REPORT INFORMATION
  Report Type: Spontaneous
  Country: TW (occurrence: TW)
  Receive Date: 20130528
  Receipt Date: 20130528
  Transmission Date: 20140414
  Serious: Yes (Hospitalization)
  Sender: FDA-Public Use
  Company Number: TW-JNJFOC-20130509067

PATIENT
  Age: 46 Year
  Sex: Female
  Weight: 67.2 kg

DRUGS (1)
  1. HALOPERIDOL [Suspect]
     Indication: SCHIZOPHRENIA
     Route: 048

REACTIONS (6)
  - Neuroleptic malignant syndrome [Recovered/Resolved]
  - Hypokalaemia [Recovering/Resolving]
  - Decreased appetite [Recovering/Resolving]
  - Urinary tract infection [Recovering/Resolving]
  - Hepatic function abnormal [Recovering/Resolving]
  - Schizophrenia [Recovering/Resolving]
